FAERS Safety Report 6690142-2 (Version None)
Quarter: 2010Q2

REPORT INFORMATION
  Report Type: 
  Country: None (occurrence: None)
  Receive Date: 20100421
  Receipt Date: 20100419
  Transmission Date: 20101027
  Serious: Yes (Death, Hospitalization, Other)
  Sender: FDA-Public Use
  Company Number: PHHY2010GB05468

PATIENT
  Sex: Male

DRUGS (20)
  1. CLOZARIL [Suspect]
     Indication: SCHIZOPHRENIA
     Dosage: 500 MG, QD
     Dates: start: 19951205
  2. CLOZARIL [Suspect]
     Dosage: 400 MG, QD
     Dates: start: 20100127
  3. CLOZARIL [Suspect]
     Dosage: 300 MG, QD
     Dates: start: 20100205, end: 20100216
  4. CITALOPRAM HYDROBROMIDE [Concomitant]
     Dosage: 40 MG, QD
  5. CHEMOTHERAPEUTICS NOS [Concomitant]
  6. DOCUSATE SODIUM [Concomitant]
     Dosage: 200 MG, TID
  7. ARIPIPRAZOLE [Concomitant]
     Dosage: 10 MG, QD
  8. ADCAL [Concomitant]
     Dosage: 600 MG, BID
  9. PARACETAMOL [Concomitant]
  10. DIFFLAM [Concomitant]
     Dosage: 500 MG, PRN
     Route: 048
  11. MORPHINE SULFATE [Concomitant]
     Dosage: 10 MG, 1 TAB EVERY 10HRS
  12. MORPHINE SULFATE [Concomitant]
     Dosage: 15 MG, 1 TAB EVERY 12 HRS
  13. SIMVASTATIN [Concomitant]
     Dosage: 20 MG, QD
  14. RANITIDINE [Concomitant]
     Dosage: 300 MG, QD
  15. ALLOPURINOL [Concomitant]
     Dosage: 100 MG, BID
  16. LACTULOSE [Concomitant]
     Dosage: 10 ML, TID
  17. SENNA [Concomitant]
     Dosage: 2 TABS, BD
  18. DEXAMETHASONE [Concomitant]
  19. ORAMORPH SR [Concomitant]
     Dosage: 3.55 ML, PRN
  20. RANITIDINE [Concomitant]
     Dosage: 300 MG, QD

REACTIONS (5)
  - FALL [None]
  - LEUKAEMIA [None]
  - METASTASES TO BONE [None]
  - NEOPLASM MALIGNANT [None]
  - PLATELET COUNT DECREASED [None]
